FAERS Safety Report 8536722-0 (Version None)
Quarter: 2012Q3

REPORT INFORMATION
  Report Type: 
  Country: None (occurrence: None)
  Receive Date: 20120725
  Receipt Date: 20120713
  Transmission Date: 20120928
  Serious: Yes (Other)
  Sender: FDA-Public Use
  Company Number: HR-FRI-1000037178

PATIENT
  Age: 78 Year
  Sex: Female

DRUGS (2)
  1. NEBIVOLOL [Suspect]
     Indication: ESSENTIAL HYPERTENSION
     Route: 048
     Dates: start: 20120501
  2. CILAZIL [Concomitant]

REACTIONS (3)
  - PERIPHERAL COLDNESS [None]
  - CYANOSIS [None]
  - OEDEMA PERIPHERAL [None]
